FAERS Safety Report 10045692 (Version 6)
Quarter: 2014Q2

REPORT INFORMATION
  Report Type: Spontaneous
  Country: US (occurrence: US)
  Receive Date: 20140328
  Receipt Date: 20140612
  Transmission Date: 20141212
  Serious: Yes (Hospitalization, Disabling, Other)
  Sender: FDA-Public Use
  Company Number: US-009507513-1110USA03427

PATIENT
  Sex: Female
  Weight: 51.7 kg

DRUGS (5)
  1. FOSAMAX [Suspect]
     Indication: OSTEOPOROSIS
     Dosage: 70 MG, QW
     Route: 048
     Dates: start: 20010428, end: 200909
  2. FOSAMAX [Suspect]
     Indication: OSTEOPENIA
  3. ALENDRONATE SODIUM [Suspect]
     Dosage: 70 MG, UNK
     Route: 048
     Dates: start: 20081002
  4. BONIVA [Suspect]
     Indication: OSTEOPENIA
     Dosage: UNK
     Route: 048
     Dates: start: 20080322, end: 20080422
  5. PREMARIN [Concomitant]
     Indication: OSTEOPOROSIS PROPHYLAXIS
     Dosage: UNK
     Dates: start: 199604

REACTIONS (43)
  - Low turnover osteopathy [Not Recovered/Not Resolved]
  - Dental operation [Unknown]
  - Renal failure [Unknown]
  - Implantable defibrillator insertion [Unknown]
  - Osteonecrosis of jaw [Not Recovered/Not Resolved]
  - Osteonecrosis of jaw [Unknown]
  - Osteonecrosis of jaw [Recovered/Resolved]
  - Blood cholesterol increased [Unknown]
  - Hypertension [Unknown]
  - Loose tooth [Unknown]
  - Toothache [Unknown]
  - Loose tooth [Unknown]
  - Toothache [Unknown]
  - Dental caries [Unknown]
  - Loose tooth [Unknown]
  - Gingival swelling [Unknown]
  - Tooth extraction [Unknown]
  - Exostosis of jaw [Unknown]
  - Nasopharyngitis [Unknown]
  - Exostosis of jaw [Unknown]
  - Patient-device incompatibility [Unknown]
  - Sinus congestion [Unknown]
  - Tooth loss [Unknown]
  - Exostosis [Unknown]
  - Exposed bone in jaw [Unknown]
  - Bone lesion excision [Unknown]
  - Jaw operation [Unknown]
  - Impaired healing [Unknown]
  - Dyspnoea [Unknown]
  - Dermatitis allergic [Unknown]
  - Restless legs syndrome [Recovering/Resolving]
  - Osteomyelitis [Unknown]
  - Cardiac failure congestive [Unknown]
  - Bradycardia [Unknown]
  - Vulvovaginal mycotic infection [Unknown]
  - Limb fracture [Unknown]
  - Ankle fracture [Unknown]
  - Conjunctivitis [Unknown]
  - Liver function test abnormal [Recovered/Resolved]
  - Clostridium difficile colitis [Recovered/Resolved]
  - Candida infection [Recovered/Resolved]
  - Pain in jaw [Unknown]
  - Gastrooesophageal reflux disease [Unknown]
